FAERS Safety Report 19266486 (Version 2)
Quarter: 2021Q2

REPORT INFORMATION
  Report Type: Spontaneous
  Country: US (occurrence: US)
  Receive Date: 20210517
  Receipt Date: 20210524
  Transmission Date: 20210717
  Serious: Yes (Other)
  Sender: FDA-Public Use
  Company Number: US-GW PHARMA-202105USGW02319

PATIENT

DRUGS (3)
  1. EPIDIOLEX [Suspect]
     Active Substance: CANNABIDIOL
     Dosage: DOSE INCREASED
     Route: 048
     Dates: start: 202104, end: 202104
  2. EPIDIOLEX [Suspect]
     Active Substance: CANNABIDIOL
     Indication: SEVERE MYOCLONIC EPILEPSY OF INFANCY
     Dosage: 5 MG/KG/DAY, 110 MILLIGRAM, BID
     Route: 048
     Dates: start: 20210409, end: 202104
  3. EPIDIOLEX [Suspect]
     Active Substance: CANNABIDIOL
     Dosage: 110 MILLIGRAM, BID
     Route: 048
     Dates: start: 202104

REACTIONS (6)
  - Hallucination [Unknown]
  - Fear [Unknown]
  - Swelling face [Unknown]
  - Peripheral swelling [Unknown]
  - Abdominal pain upper [Unknown]
  - Diarrhoea [Unknown]

NARRATIVE: CASE EVENT DATE: 2021
